FAERS Safety Report 8899403 (Version 1)
Quarter: 2012Q4

REPORT INFORMATION
  Report Type: 
  Country: US (occurrence: US)
  Receive Date: 20121108
  Receipt Date: 20121108
  Transmission Date: 20130627
  Serious: No
  Sender: FDA-Public Use
  Company Number: US-AMGEN-USASP2012032707

PATIENT
  Age: 46 Year
  Sex: Female
  Weight: 81.63 kg

DRUGS (8)
  1. ENBREL [Suspect]
     Indication: PRODUCT USED FOR UNKNOWN INDICATION
     Dosage: 50 mg, qwk
     Route: 058
  2. METHOTREXATE [Concomitant]
     Dosage: 2.5 mg, UNK
  3. IBUPROFEN [Concomitant]
     Dosage: 200 mg, UNK
  4. CALCIUM VITAMIN D [Concomitant]
  5. B COMPLEX                          /00212701/ [Concomitant]
  6. MULTIVITAMIN                       /00097801/ [Concomitant]
  7. GLUCOSAMIN CHONDR [Concomitant]
  8. D3 [Concomitant]
     Dosage: 10000 IU, UNK

REACTIONS (2)
  - Injection site erythema [Recovering/Resolving]
  - Injection site bruising [Recovering/Resolving]
